FAERS Safety Report 18511205 (Version 1)
Quarter: 2020Q4

REPORT INFORMATION
  Report Type: Spontaneous
  Country: US (occurrence: US)
  Receive Date: 20201117
  Receipt Date: 20201117
  Transmission Date: 20210114
  Serious: Yes (Other)
  Sender: FDA-Public Use
  Company Number: None

PATIENT
  Age: 9 Year
  Sex: Female
  Weight: 32.85 kg

DRUGS (4)
  1. TYLENOL CHILDRENS CHEWABLES 160MG ORAL [Concomitant]
  2. FAMOTIDINE 10MG ORAL [Concomitant]
  3. KOSELUGO [Suspect]
     Active Substance: SELUMETINIB
     Indication: NEUROFIBROMATOSIS
     Route: 048
     Dates: start: 20200611
  4. LOPERAMIDE 2MG ORAL [Concomitant]

REACTIONS (2)
  - Abdominal pain upper [None]
  - Alopecia [None]

NARRATIVE: CASE EVENT DATE: 20201116
